FAERS Safety Report 9146718 (Version 1)
Quarter: 2013Q1

REPORT INFORMATION
  Report Type: Spontaneous
  Country: US (occurrence: US)
  Receive Date: 20130307
  Receipt Date: 20130307
  Transmission Date: 20140127
  Serious: Yes (Other)
  Sender: FDA-Public Use
  Company Number: US-US-EMD SERONO, INC.-7046427

PATIENT
  Sex: Male

DRUGS (1)
  1. REBIF [Suspect]
     Indication: MULTIPLE SCLEROSIS
     Route: 058
     Dates: start: 20090107

REACTIONS (5)
  - Squamous cell carcinoma of the tongue [Recovering/Resolving]
  - Tonsil cancer [Recovering/Resolving]
  - Metastases to lymph nodes [Recovering/Resolving]
  - Alopecia [Not Recovered/Not Resolved]
  - Headache [Unknown]
